FAERS Safety Report 6794802-4 (Version None)
Quarter: 2010Q2

REPORT INFORMATION
  Report Type: 
  Country: None (occurrence: None)
  Receive Date: 20100625
  Receipt Date: 20100617
  Transmission Date: 20101027
  Serious: Yes (Life-Threatening, Hospitalization)
  Sender: FDA-Public Use
  Company Number: JP-BRISTOL-MYERS SQUIBB COMPANY-15160500

PATIENT
  Age: 76 Year
  Sex: Male

DRUGS (15)
  1. IRBETAN [Suspect]
     Indication: HYPERTENSION
     Route: 048
     Dates: start: 20090912, end: 20091031
  2. NORVASC [Concomitant]
     Indication: HYPERTENSION
     Dates: start: 20090403, end: 20091031
  3. EVIPROSTAT [Concomitant]
     Dates: start: 20090912, end: 20091031
  4. OMEPRAL [Concomitant]
     Dates: start: 20010912, end: 20091031
  5. LIVALO [Concomitant]
     Dates: start: 20090912, end: 20091031
  6. GASMOTIN [Concomitant]
     Dates: start: 20090912, end: 20091031
  7. MYSLEE [Concomitant]
     Dates: start: 20090909, end: 20091013
  8. DOGMATYL [Concomitant]
     Dates: start: 20090912, end: 20091031
  9. MEILAX [Concomitant]
     Dates: start: 20090912, end: 20091013
  10. NEOLAMIN [Concomitant]
     Dates: start: 20090909, end: 20091031
  11. ZOLOFT [Concomitant]
     Dates: start: 20091016, end: 20091031
  12. URSO 250 [Concomitant]
     Indication: HEPATIC FUNCTION ABNORMAL
     Dates: start: 20091013, end: 20091031
  13. PROHEPARUM [Concomitant]
     Indication: HEPATIC FUNCTION ABNORMAL
     Dates: start: 20091013, end: 20091031
  14. MIRTAZAPINE [Concomitant]
     Dates: start: 20090925, end: 20091015
  15. ASCORBIC ACID [Concomitant]
     Dates: start: 20090909, end: 20091031

REACTIONS (2)
  - HEPATIC FUNCTION ABNORMAL [None]
  - RESPIRATORY FAILURE [None]
